FAERS Safety Report 9685007 (Version 2)
Quarter: 2013Q4

REPORT INFORMATION
  Report Type: Spontaneous
  Country: NO (occurrence: NO)
  Receive Date: 20131113
  Receipt Date: 20131113
  Transmission Date: 20140711
  Serious: Yes (Other)
  Sender: FDA-Public Use
  Company Number: NO-AMGEN-NORSP2013075051

PATIENT
  Age: 67 Year
  Sex: Female

DRUGS (5)
  1. ENBREL [Suspect]
     Indication: PRODUCT USED FOR UNKNOWN INDICATION
     Dosage: 50 MG, UNK
     Route: 065
     Dates: start: 2011
  2. METHOTREXATE [Concomitant]
     Dosage: UNK
     Route: 065
  3. VOLTAREN                           /00372301/ [Concomitant]
     Dosage: UNK
     Route: 065
  4. FOLIC ACID [Concomitant]
     Dosage: UNK
     Route: 065
  5. CALCIUM [Concomitant]
     Dosage: UNK
     Route: 065

REACTIONS (3)
  - Product quality issue [Unknown]
  - Osteoporosis [Not Recovered/Not Resolved]
  - Injection site pain [Unknown]
